FAERS Safety Report 4388100-6 (Version None)
Quarter: 2004Q2

REPORT INFORMATION
  Report Type: 
  Country: None (occurrence: None)
  Receive Date: 20040623
  Receipt Date: 20040616
  Transmission Date: 20050107
  Serious: Yes (Hospitalization, Other)
  Sender: FDA-Public Use
  Company Number: KII-2004-0011407

PATIENT
  Age: 36 Year
  Sex: Female

DRUGS (7)
  1. OXYCONTIN TABLETS (OXYCODONE HYDROCODONE) CR TABLET [Suspect]
     Dosage: ORAL
     Route: 048
  2. ANTIEPILEPTICS () [Suspect]
     Dosage: ORAL
     Route: 048
  3. ANTIINFLAMMATORY/ANTIRHEUMATIC PRODUCTS) [Suspect]
     Dosage: ORAL
     Route: 048
  4. COCAINE (COCAINE) [Suspect]
  5. TETRAHYDROCANNABINOL (TETRAHYDROCANNABINOL) [Suspect]
  6. TRICYLIC ANTIDEPRESSANTS () [Suspect]
  7. ACETYLSALICYLIC ACID SRT [Suspect]

REACTIONS (17)
  - ACIDOSIS [None]
  - ATELECTASIS [None]
  - BLOOD CREATINE PHOSPHOKINASE INCREASED [None]
  - BLOOD CREATINE PHOSPHOKINASE MB INCREASED [None]
  - BLOOD GLUCOSE INCREASED [None]
  - BODY TEMPERATURE DECREASED [None]
  - CHROMATURIA [None]
  - COMA [None]
  - DRUG SCREEN POSITIVE [None]
  - EPISTAXIS [None]
  - INJURY [None]
  - LOGORRHOEA [None]
  - LUNG INFILTRATION [None]
  - MULTIPLE DRUG OVERDOSE [None]
  - PNEUMONIA ASPIRATION [None]
  - SINUS TACHYCARDIA [None]
  - WHITE BLOOD CELL COUNT INCREASED [None]
